FAERS Safety Report 16807194 (Version 2)
Quarter: 2019Q4

REPORT INFORMATION
  Report Type: Spontaneous
  Country: CA (occurrence: CA)
  Receive Date: 20190913
  Receipt Date: 20191031
  Transmission Date: 20200122
  Serious: Yes (Disabling, Other)
  Sender: FDA-Public Use
  Company Number: CA-TEVA-2019-CA-1108018

PATIENT
  Age: 23 Year
  Sex: Male
  Weight: 61 kg

DRUGS (15)
  1. MAGNESIUM [Concomitant]
     Active Substance: MAGNESIUM
  2. OMEGA - 3 [Concomitant]
  3. METRONIDAZOLE. [Concomitant]
     Active Substance: METRONIDAZOLE
  4. N-ACETYLCYSTEINE [Concomitant]
     Active Substance: ACETYLCYSTEINE
  5. PAROXETINE. [Suspect]
     Active Substance: PAROXETINE
  6. CIPROFLOXACIN. [Suspect]
     Active Substance: CIPROFLOXACIN
     Indication: GASTROINTESTINAL DISORDER
     Dosage: 500 MILLIGRAM DAILY;
     Route: 048
  7. FLAGYL [Suspect]
     Active Substance: METRONIDAZOLE\METRONIDAZOLE HYDROCHLORIDE
     Dosage: 2000 MILLIGRAM DAILY;
     Route: 048
  8. UNDA 9 [Concomitant]
     Active Substance: GOLD\LEAD\MELISSA OFFICINALIS\MENTHA PIPERITA\SALVIA PRATENSIS LEAF\THYMUS VULGARIS WHOLE\VALERIAN
  9. CLONAZEPAM. [Suspect]
     Active Substance: CLONAZEPAM
  10. MELATONIN [Concomitant]
     Active Substance: MELATONIN
  11. VITAMIN B12 [Concomitant]
     Active Substance: CYANOCOBALAMIN
  12. VITAMIN D [Concomitant]
     Active Substance: VITAMIN D NOS
  13. VITAMIN B6 [Concomitant]
     Active Substance: PYRIDOXINE HYDROCHLORIDE
  14. ZOPICLONE [Suspect]
     Active Substance: ZOPICLONE
  15. PROBIOTIC [Concomitant]
     Active Substance: PROBIOTICS NOS

REACTIONS (17)
  - Anxiety [Recovering/Resolving]
  - Feeling abnormal [Recovering/Resolving]
  - Amnesia [Recovering/Resolving]
  - Dysstasia [Recovering/Resolving]
  - Mental impairment [Recovering/Resolving]
  - Derealisation [Recovering/Resolving]
  - Speech disorder [Recovering/Resolving]
  - Fatigue [Recovering/Resolving]
  - Aphasia [Recovering/Resolving]
  - Appetite disorder [Recovering/Resolving]
  - Depersonalisation/derealisation disorder [Recovering/Resolving]
  - Depression [Recovering/Resolving]
  - Insomnia [Recovering/Resolving]
  - Nausea [Recovering/Resolving]
  - Dissociation [Recovering/Resolving]
  - Sleep disorder due to a general medical condition [Recovering/Resolving]
  - Suicidal ideation [Recovering/Resolving]
